FAERS Safety Report 8847792 (Version 7)
Quarter: 2014Q1

REPORT INFORMATION
  Report Type: Spontaneous
  Country: US (occurrence: US)
  Receive Date: 20121018
  Receipt Date: 20140218
  Transmission Date: 20141002
  Serious: Yes (Hospitalization, Disabling, Other)
  Sender: FDA-Public Use
  Company Number: US-009507513-1210USA007657

PATIENT
  Sex: Female
  Weight: 56.69 kg

DRUGS (6)
  1. FOSAMAX [Suspect]
     Indication: OSTEOPOROSIS
     Dosage: 5 MG, QAM
     Route: 048
  2. FOSAMAX [Suspect]
     Indication: RHEUMATOID ARTHRITIS
     Dosage: 70 MG, UNK
     Route: 048
     Dates: start: 2000
  3. FOSAMAX [Suspect]
     Dosage: 10 MG, UNK
     Route: 048
     Dates: start: 199901, end: 200002
  4. ALENDRONATE SODIUM [Suspect]
  5. ULTRAM [Concomitant]
     Dosage: UNK
     Dates: start: 1995, end: 2007
  6. CORTICOSTEROIDS (UNSPECIFIED) [Concomitant]
     Dosage: UNK
     Dates: start: 1995, end: 2011

REACTIONS (45)
  - Femur fracture [Recovering/Resolving]
  - Intramedullary rod insertion [Recovering/Resolving]
  - Surgery [Unknown]
  - Splenectomy [Unknown]
  - Foot operation [Unknown]
  - Surgery [Unknown]
  - Fall [Unknown]
  - Compression fracture [Unknown]
  - Compression fracture [Unknown]
  - Vitamin D decreased [Unknown]
  - Tonsillectomy [Unknown]
  - Hysterectomy [Unknown]
  - Emphysema [Unknown]
  - Crepitations [Unknown]
  - Nodal osteoarthritis [Unknown]
  - Bunion [Unknown]
  - Drug intolerance [Unknown]
  - White blood cell count increased [Unknown]
  - Blood potassium decreased [Unknown]
  - Blood glucose increased [Unknown]
  - Atelectasis [Unknown]
  - Osteopenia [Unknown]
  - Cardiomegaly [Unknown]
  - Vasodilatation [Unknown]
  - Foot operation [Unknown]
  - Osteoarthritis [Unknown]
  - Rheumatoid arthritis [Unknown]
  - Cough [Unknown]
  - Foot operation [Unknown]
  - Asthma [Unknown]
  - Pulmonary fibrosis [Unknown]
  - Trismus [Unknown]
  - Injury [Unknown]
  - Chondrocalcinosis [Unknown]
  - Diabetes mellitus [Unknown]
  - Off label use [Unknown]
  - Drug hypersensitivity [Unknown]
  - Back pain [Not Recovered/Not Resolved]
  - Oesophagitis [Unknown]
  - Arthralgia [Unknown]
  - Arthralgia [Unknown]
  - Arthralgia [Unknown]
  - Drug ineffective [Unknown]
  - Drug ineffective [Unknown]
  - Arthralgia [Unknown]
